FAERS Safety Report 5164610-9 (Version None)
Quarter: 2006Q4

REPORT INFORMATION
  Report Type: 
  Country: None (occurrence: None)
  Receive Date: 20061124
  Receipt Date: 20061114
  Transmission Date: 20070319
  Serious: Yes (Other)
  Sender: FDA-Public Use
  Company Number: 2006142137

PATIENT
  Sex: Male
  Weight: 81.6475 kg

DRUGS (2)
  1. DILANTIN [Suspect]
     Indication: GRAND MAL CONVULSION
     Dosage: 400 MG (100 MG, 4 IN 1 D)
     Dates: start: 19680101
  2. MEBARAL              (METHYLPHENOBARBITAL) [Concomitant]

REACTIONS (8)
  - BLOOD CHOLESTEROL INCREASED [None]
  - CONDITION AGGRAVATED [None]
  - CONVULSION [None]
  - EMOTIONAL DISORDER [None]
  - EPILEPSY [None]
  - HYPERTENSION [None]
  - MYOCARDIAL INFARCTION [None]
  - SOCIAL AVOIDANT BEHAVIOUR [None]
